FAERS Safety Report 10067250 (Version 2)
Quarter: 2014Q2

REPORT INFORMATION
  Report Type: Spontaneous
  Country: US (occurrence: None)
  Receive Date: 20140407
  Receipt Date: 20140417
  Transmission Date: 20141212
  Serious: Yes (Death)
  Sender: FDA-Public Use
  Company Number: UTC-046617

PATIENT
  Age: 75 Year
  Sex: Male
  Weight: 83.46 kg

DRUGS (3)
  1. REMODULIN [Suspect]
     Indication: COR PULMONALE CHRONIC
     Dosage: 36 UG/KG (0.25 UG/KG, 1 IN 1 MIN)
     Route: 058
     Dates: start: 20100626, end: 20140106
  2. REVATIO (SILDENAFIL CITRATE) (SILDENAFIL CITRATE) [Concomitant]
  3. LETAIRIS (AMBRISENTAN) (TABLETS) [Concomitant]

REACTIONS (2)
  - Death [None]
  - Hypoventilation [None]
